FAERS Safety Report 12786817 (Version 1)
Quarter: 2016Q3

REPORT INFORMATION
  Report Type: Spontaneous
  Country: US (occurrence: US)
  Receive Date: 20160928
  Receipt Date: 20160928
  Transmission Date: 20161109
  Serious: No
  Sender: FDA-Public Use
  Company Number: US-PFIZER INC-2016451853

PATIENT
  Age: 14 Year
  Sex: Male

DRUGS (1)
  1. GENOTROPIN [Suspect]
     Active Substance: SOMATROPIN
     Dates: start: 201108, end: 201608

REACTIONS (3)
  - Aggression [Recovered/Resolved]
  - Mood swings [Unknown]
  - Headache [Unknown]

NARRATIVE: CASE EVENT DATE: 2016
